FAERS Safety Report 7068299 (Version 2)
Quarter: 2014Q3

REPORT INFORMATION
  Report Type: Spontaneous
  Country: US (occurrence: None)
  Receive Date: 20090724
  Receipt Date: 20140915
  Transmission Date: 20150326
  Serious: Yes (Other)
  Sender: FDA-Public Use
  Company Number: 2009S1005580

PATIENT
  Age: 69 Year
  Sex: Female

DRUGS (5)
  1. LIPITOR [Concomitant]
     Active Substance: ATORVASTATIN CALCIUM
  2. PHOSPHO-SODA [Suspect]
     Active Substance: SODIUM PHOSPHATE, DIBASIC\SODIUM PHOSPHATE, MONOBASIC
     Indication: COLONOSCOPY
     Route: 048
     Dates: start: 20060815, end: 20060815
  3. PROTONIX [Concomitant]
     Active Substance: PANTOPRAZOLE SODIUM
  4. LEVOXYL (LEVOTHYROXINE SODIUM) [Concomitant]
  5. ACTONEL (RISEDRONATE SODIUM) [Concomitant]

REACTIONS (6)
  - Acute phosphate nephropathy [None]
  - Asthenia [None]
  - Anaemia of chronic disease [None]
  - Dizziness [None]
  - Renal failure acute [None]
  - Decreased appetite [None]

NARRATIVE: CASE EVENT DATE: 20060818
